FAERS Safety Report 17997748 (Version 1)
Quarter: 2020Q3

REPORT INFORMATION
  Report Type: Report from Study
  Country: US (occurrence: US)
  Receive Date: 20200708
  Receipt Date: 20200708
  Transmission Date: 20201103
  Serious: Yes (Hospitalization)
  Sender: FDA-Public Use
  Company Number: US-EXELIXIS-CABO-20030300

PATIENT
  Sex: Female

DRUGS (10)
  1. CABOMETYX [Suspect]
     Active Substance: CABOZANTINIB S-MALATE
     Indication: RENAL CELL CARCINOMA
     Dosage: 40 MG, QD
     Dates: start: 202005, end: 202006
  2. LORAZEPAM. [Concomitant]
     Active Substance: LORAZEPAM
  3. APAP [Concomitant]
     Active Substance: ACETAMINOPHEN
  4. URSODIOL. [Concomitant]
     Active Substance: URSODIOL
  5. PROCHLORPERAZINE. [Concomitant]
     Active Substance: PROCHLORPERAZINE
  6. UNISOM SLEEPTABS [Concomitant]
     Active Substance: DOXYLAMINE SUCCINATE
  7. ZOFRAN [Concomitant]
     Active Substance: ONDANSETRON HYDROCHLORIDE
     Indication: NAUSEA
  8. POTASSIUM [Concomitant]
     Active Substance: POTASSIUM
  9. OMEPRAZOLE. [Concomitant]
     Active Substance: OMEPRAZOLE
  10. ATORVASTATIN [Concomitant]
     Active Substance: ATORVASTATIN

REACTIONS (6)
  - Decreased appetite [Unknown]
  - Skin exfoliation [Unknown]
  - Asthenia [Unknown]
  - Biliary tract disorder [Unknown]
  - Fatigue [Not Recovered/Not Resolved]
  - Neuropathy peripheral [Unknown]
